FAERS Safety Report 7416820-5 (Version None)
Quarter: 2011Q1

REPORT INFORMATION
  Report Type: 
  Country: None (occurrence: None)
  Receive Date: 20110302
  Receipt Date: 20101209
  Transmission Date: 20110831
  Serious: No
  Sender: FDA-Public Use
  Company Number: 023550

PATIENT
  Sex: Female

DRUGS (4)
  1. PAXIL [Concomitant]
  2. MERCAPTOPURINE [Concomitant]
  3. CLARITIN [Concomitant]
  4. CERTOLIZUMAB PEGOL [Suspect]
     Indication: CROHN'S DISEASE
     Dosage: TWO SHOTS SUBCUTANEOUS
     Route: 058
     Dates: start: 20101001

REACTIONS (8)
  - PAIN [None]
  - JOINT SWELLING [None]
  - ARTHRITIS [None]
  - MYALGIA [None]
  - FEELING ABNORMAL [None]
  - PAIN IN EXTREMITY [None]
  - GAIT DISTURBANCE [None]
  - TENDERNESS [None]
